FAERS Safety Report 14143123 (Version 1)
Quarter: 2020Q3

REPORT INFORMATION
  Report Type: Report from Study
  Country: FI (occurrence: FI)
  Receive Date: 20171030
  Receipt Date: 20171030
  Transmission Date: 20201104
  Serious: Yes (Other)
  Sender: FDA-Public Use
  Company Number: FI-ROCHE-2012960

PATIENT

DRUGS (24)
  1. DOCETAXEL. [Suspect]
     Active Substance: DOCETAXEL
     Route: 065
  2. OXALIPLATIN. [Suspect]
     Active Substance: OXALIPLATIN
     Indication: PROSTATE CANCER METASTATIC
     Route: 065
  3. IBANDRONIC ACID. [Suspect]
     Active Substance: IBANDRONIC ACID
     Indication: PROSTATE CANCER METASTATIC
     Route: 065
  4. DOCETAXEL. [Suspect]
     Active Substance: DOCETAXEL
     Indication: PROSTATE CANCER METASTATIC
     Route: 065
  5. CABAZITAXEL [Suspect]
     Active Substance: CABAZITAXEL
     Indication: PROSTATE CANCER METASTATIC
     Route: 065
  6. CARBOPLATIN. [Suspect]
     Active Substance: CARBOPLATIN
     Indication: PROSTATE CANCER METASTATIC
     Route: 065
  7. ESTRAMUSTINE [Suspect]
     Active Substance: ESTRAMUSTINE
     Indication: PROSTATE CANCER METASTATIC
     Route: 065
  8. VINORELBINE [Suspect]
     Active Substance: VINORELBINE TARTRATE
     Indication: PROSTATE CANCER METASTATIC
     Route: 065
  9. ENZALUTAMIDE [Suspect]
     Active Substance: ENZALUTAMIDE
     Indication: PROSTATE CANCER METASTATIC
     Route: 048
  10. PREDNISOLONE. [Suspect]
     Active Substance: PREDNISOLONE
     Indication: PROSTATE CANCER METASTATIC
     Route: 065
  11. DEGARELIX [Suspect]
     Active Substance: DEGARELIX
     Indication: PROSTATE CANCER METASTATIC
     Route: 065
  12. ETOPOSIDE. [Suspect]
     Active Substance: ETOPOSIDE
     Indication: PROSTATE CANCER METASTATIC
     Route: 065
  13. PEMBROLIZUMAB. [Suspect]
     Active Substance: PEMBROLIZUMAB
     Indication: PROSTATE CANCER METASTATIC
     Route: 065
  14. BICALUTAMIDE. [Suspect]
     Active Substance: BICALUTAMIDE
     Indication: PROSTATE CANCER METASTATIC
     Route: 065
  15. CETUXIMAB. [Suspect]
     Active Substance: CETUXIMAB
     Indication: PROSTATE CANCER METASTATIC
     Route: 065
  16. CYCLOPHOSPHAMIDE. [Suspect]
     Active Substance: CYCLOPHOSPHAMIDE
     Indication: PROSTATE CANCER METASTATIC
     Route: 065
  17. ZOLEDRONATE [Suspect]
     Active Substance: ZOLEDRONIC ACID
     Indication: PROSTATE CANCER METASTATIC
     Route: 065
  18. DENOSUMAB [Suspect]
     Active Substance: DENOSUMAB
     Indication: PROSTATE CANCER METASTATIC
     Route: 065
  19. VINBLASTINE [Suspect]
     Active Substance: VINBLASTINE
     Indication: PROSTATE CANCER METASTATIC
     Route: 065
  20. DOCETAXEL. [Suspect]
     Active Substance: DOCETAXEL
     Route: 065
  21. GEMCITABINE. [Suspect]
     Active Substance: GEMCITABINE
     Indication: PROSTATE CANCER METASTATIC
     Route: 065
  22. ABIRATERONE. [Suspect]
     Active Substance: ABIRATERONE ACETATE
     Indication: PROSTATE CANCER METASTATIC
     Route: 048
  23. DOXORUBICIN [Suspect]
     Active Substance: DOXORUBICIN
     Indication: PROSTATE CANCER METASTATIC
     Route: 065
  24. MITOXANTRONE [Suspect]
     Active Substance: MITOXANTRONE HYDROCHLORIDE
     Indication: PROSTATE CANCER METASTATIC
     Route: 065

REACTIONS (12)
  - Functional gastrointestinal disorder [Unknown]
  - Urine flow decreased [Recovered/Resolved]
  - Diarrhoea [Recovered/Resolved]
  - Gastrointestinal disorder [Recovered/Resolved]
  - Leukopenia [Unknown]
  - Urogenital disorder [Recovered/Resolved]
  - Thrombocytopenia [Unknown]
  - Urinary retention [Recovered/Resolved]
  - Incontinence [Recovered/Resolved]
  - Pollakiuria [Recovered/Resolved]
  - Nocturia [Recovered/Resolved]
  - Micturition disorder [Unknown]
